FAERS Safety Report 23337810 (Version 2)
Quarter: 2024Q1

REPORT INFORMATION
  Report Type: Report from Study
  Country: US (occurrence: US)
  Receive Date: 20231226
  Receipt Date: 20240209
  Transmission Date: 20240409
  Serious: Yes (Hospitalization, Other)
  Sender: FDA-Public Use
  Company Number: US-ABBVIE-5556637

PATIENT
  Age: 77 Year
  Sex: Male
  Weight: 83.914 kg

DRUGS (7)
  1. VENCLEXTA [Suspect]
     Active Substance: VENETOCLAX
     Indication: Chronic lymphocytic leukaemia
     Dosage: WEEK 4
     Route: 048
     Dates: start: 2023
  2. VENCLEXTA [Suspect]
     Active Substance: VENETOCLAX
     Indication: Chronic lymphocytic leukaemia
     Dosage: WEEK 2
     Route: 048
     Dates: start: 2023
  3. VENCLEXTA [Suspect]
     Active Substance: VENETOCLAX
     Indication: Chronic lymphocytic leukaemia
     Dosage: WEEK 1
     Route: 048
     Dates: start: 202305
  4. VENCLEXTA [Suspect]
     Active Substance: VENETOCLAX
     Indication: Chronic lymphocytic leukaemia
     Dosage: WEEK 3
     Route: 048
     Dates: start: 2023
  5. ALLOPURINOL [Concomitant]
     Active Substance: ALLOPURINOL
     Indication: Renal disorder
  6. JAYPIRCA [Suspect]
     Active Substance: PIRTOBRUTINIB
     Indication: Renal disorder
     Route: 065
  7. VALACYCLOVIR [Concomitant]
     Active Substance: VALACYCLOVIR HYDROCHLORIDE
     Indication: Immune system disorder

REACTIONS (5)
  - Intervertebral disc compression [Recovering/Resolving]
  - Rash macular [Not Recovered/Not Resolved]
  - Pain [Recovered/Resolved]
  - Asthenia [Recovering/Resolving]
  - Gait disturbance [Recovered/Resolved]

NARRATIVE: CASE EVENT DATE: 20230801
